FAERS Safety Report 4678201-7 (Version None)
Quarter: 2005Q2

REPORT INFORMATION
  Report Type: 
  Country: None (occurrence: None)
  Receive Date: 20050527
  Receipt Date: 20050519
  Transmission Date: 20051028
  Serious: Yes (Hospitalization)
  Sender: FDA-Public Use
  Company Number: 212333

PATIENT
  Age: 61 Year
  Sex: Female

DRUGS (5)
  1. MABTHERA(RITUXIMAB) CONC FOR SOLUTION FOR INFUSION, 100MG [Suspect]
     Indication: DRUG USE FOR UNKNOWN INDICATION
     Dosage: INTRAVENOUS
     Route: 042
  2. HUMIRA [Suspect]
     Indication: DRUG USE FOR UNKNOWN INDICATION
     Dates: start: 20030301, end: 20040101
  3. HUMIRA [Suspect]
     Indication: DRUG USE FOR UNKNOWN INDICATION
     Dates: start: 20040101, end: 20040201
  4. LEFLUNOMIDE [Suspect]
     Indication: DRUG USE FOR UNKNOWN INDICATION
  5. RIFAMPICIN [Concomitant]

REACTIONS (10)
  - ASPERGILLOSIS [None]
  - BIOPSY BRONCHUS ABNORMAL [None]
  - BREAST MASS [None]
  - BRONCHITIS CHRONIC [None]
  - BURSITIS [None]
  - IMMUNOSUPPRESSION [None]
  - LUNG ABSCESS [None]
  - LYMPHADENOPATHY MEDIASTINAL [None]
  - NEOPLASM [None]
  - TUBERCULOSIS [None]
